FAERS Safety Report 6187912-6 (Version None)
Quarter: 2009Q2

REPORT INFORMATION
  Report Type: 
  Country: None (occurrence: None)
  Receive Date: 20090511
  Receipt Date: 20090511
  Transmission Date: 20091009
  Serious: Yes (Hospitalization)
  Sender: FDA-Public Use
  Company Number: None

PATIENT
  Sex: Male
  Weight: 69.5 kg

DRUGS (1)
  1. CISPLATIN [Suspect]
     Dosage: 185 MG
     Dates: start: 20090218

REACTIONS (1)
  - SWELLING FACE [None]
